FAERS Safety Report 13758007 (Version 1)
Quarter: 2017Q3

REPORT INFORMATION
  Report Type: Spontaneous
  Country: US (occurrence: US)
  Receive Date: 20170717
  Receipt Date: 20170717
  Transmission Date: 20171127
  Serious: No
  Sender: FDA-Public Use
  Company Number: US-TEVA-761659USA

PATIENT
  Sex: Female

DRUGS (1)
  1. ESOMEPRAZOLE [Suspect]
     Active Substance: ESOMEPRAZOLE

REACTIONS (3)
  - Product physical issue [Unknown]
  - Product quality issue [Unknown]
  - Drug dispensing error [Unknown]
